FAERS Safety Report 4656249-6 (Version None)
Quarter: 2005Q2

REPORT INFORMATION
  Report Type: 
  Country: None (occurrence: None)
  Receive Date: 20050509
  Receipt Date: 20050314
  Transmission Date: 20051028
  Serious: No
  Sender: FDA-Public Use
  Company Number: US-GLAXOSMITHKLINE-A0549607A

PATIENT
  Age: 53 Year
  Sex: Female

DRUGS (3)
  1. AVANDAMET [Suspect]
     Dosage: 1500MG PER DAY
     Route: 048
     Dates: start: 20050201
  2. COZAAR [Concomitant]
  3. TOPROL-XL [Concomitant]

REACTIONS (1)
  - SWELLING FACE [None]
